FAERS Safety Report 7424682-5 (Version None)
Quarter: 2011Q2

REPORT INFORMATION
  Report Type: 
  Country: None (occurrence: None)
  Receive Date: 20110419
  Receipt Date: 20110225
  Transmission Date: 20111010
  Serious: Yes (Hospitalization, Other)
  Sender: FDA-Public Use
  Company Number: US-BAYER-201036483NA

PATIENT
  Sex: Female

DRUGS (16)
  1. CALCIUM PLUS D [Concomitant]
     Indication: PRODUCT USED FOR UNKNOWN INDICATION
     Dosage: UNK UNK, QD
     Route: 048
  2. LEVAQUIN [Concomitant]
     Indication: BACTERIAL INFECTION
     Route: 048
  3. ULTRAM ER [Concomitant]
     Indication: BONE PAIN
     Dosage: 300 MG, QD
     Route: 048
  4. VITAMIN D [Concomitant]
     Indication: PRODUCT USED FOR UNKNOWN INDICATION
     Dosage: UNK UNK, QD
     Route: 048
  5. TRAMADOL HCL CF [Concomitant]
     Indication: PAIN
     Dosage: 50 MG, QID
     Route: 048
  6. ZANAFLEX [Concomitant]
     Indication: MUSCLE SPASMS
     Dosage: 4 MG, UNK
     Route: 048
  7. YASMIN [Suspect]
     Indication: CONTRACEPTION
     Dates: start: 20010101, end: 20100101
  8. NAPROSYN [Concomitant]
     Indication: PRODUCT USED FOR UNKNOWN INDICATION
     Route: 048
  9. ALPRAZOLAM [Concomitant]
     Indication: PRODUCT USED FOR UNKNOWN INDICATION
     Dosage: 0.5 MG, UNK
     Route: 048
  10. VALTREX [Concomitant]
     Indication: PRODUCT USED FOR UNKNOWN INDICATION
     Route: 048
  11. HYDROCODONE [Concomitant]
     Dosage: 5 MG, PRN
  12. IBUPROFEN [Concomitant]
     Indication: PRODUCT USED FOR UNKNOWN INDICATION
     Dosage: 600 MG, QID
     Route: 048
  13. FUROSEMIDE [Concomitant]
     Indication: POLYURIA
     Dosage: 40 MG, QD
     Route: 048
  14. LEVOTHYROXINE SODIUM [Concomitant]
     Indication: THYROID DISORDER
     Dosage: 50 MCG/24HR, QD
  15. SKELAXIN [Concomitant]
     Indication: MUSCLE SPASMS
     Dosage: 800 MG, TID
     Route: 048
  16. HYDROCODONE [Concomitant]
     Indication: PRODUCT USED FOR UNKNOWN INDICATION
     Dosage: 7.5 MG, PRN
     Route: 048

REACTIONS (2)
  - CHOLECYSTITIS CHRONIC [None]
  - CHOLELITHIASIS [None]
